FAERS Safety Report 9742945 (Version 2)
Quarter: 2013Q4

REPORT INFORMATION
  Report Type: Spontaneous
  Country: US (occurrence: US)
  Receive Date: 20131210
  Receipt Date: 20131210
  Transmission Date: 20140711
  Serious: No
  Sender: FDA-Public Use
  Company Number: US-TEVA-398696USA

PATIENT
  Sex: Female

DRUGS (2)
  1. BUDESONIDE [Suspect]
     Dosage: 0.5MG/2ML
     Route: 055
  2. ANTIHYPERTENSIVES [Concomitant]

REACTIONS (4)
  - Joint swelling [Recovered/Resolved]
  - Pruritus [Recovered/Resolved]
  - Dyspnoea [Recovered/Resolved]
  - Blood pressure increased [Recovered/Resolved]
